FAERS Safety Report 7951748-3 (Version None)
Quarter: 2011Q4

REPORT INFORMATION
  Report Type: 
  Country: None (occurrence: None)
  Receive Date: 20111201
  Receipt Date: 20111121
  Transmission Date: 20120403
  Serious: Yes (Other)
  Sender: FDA-Public Use
  Company Number: GB-SANOFI-AVENTIS-2011SA076953

PATIENT
  Sex: Male

DRUGS (2)
  1. OXALIPLATIN [Suspect]
     Indication: COLON CANCER METASTATIC
     Route: 065
  2. CAPECITABINE [Concomitant]
     Indication: COLON CANCER METASTATIC
     Route: 065

REACTIONS (1)
  - CARCINOEMBRYONIC ANTIGEN INCREASED [None]
